FAERS Safety Report 10969953 (Version 1)
Quarter: 2015Q1

REPORT INFORMATION
  Report Type: Spontaneous
  Country: FR (occurrence: FR)
  Receive Date: 20150331
  Receipt Date: 20150331
  Transmission Date: 20150721
  Serious: Yes (Death)
  Sender: FDA-Public Use
  Company Number: FR-JNJFOC-20150314364

PATIENT
  Age: 53 Year
  Sex: Male

DRUGS (6)
  1. NOZINAN [Suspect]
     Active Substance: LEVOMEPROMAZINE
     Indication: AGITATION
     Route: 030
     Dates: start: 20140428, end: 20140428
  2. DANTRIUM [Concomitant]
     Active Substance: DANTROLENE SODIUM
     Dosage: 3 PER DAY
     Route: 048
     Dates: start: 20140430
  3. ABILIFY [Suspect]
     Active Substance: ARIPIPRAZOLE
     Indication: BIPOLAR DISORDER
     Route: 048
     Dates: start: 2013, end: 20140428
  4. HALDOL [Suspect]
     Active Substance: HALOPERIDOL
     Indication: AGITATION
     Route: 030
     Dates: start: 20140428, end: 20140428
  5. RISPERDAL [Suspect]
     Active Substance: RISPERIDONE
     Indication: BIPOLAR DISORDER
     Route: 065
     Dates: start: 20140424, end: 20140430
  6. HYPNOVEL [Concomitant]
     Active Substance: MIDAZOLAM\MIDAZOLAM HYDROCHLORIDE
     Indication: AGITATION
     Route: 048
     Dates: start: 20140428, end: 20140428

REACTIONS (2)
  - Pulmonary embolism [Fatal]
  - Neuroleptic malignant syndrome [Fatal]

NARRATIVE: CASE EVENT DATE: 20140430
